FAERS Safety Report 13294383 (Version 1)
Quarter: 2017Q1

REPORT INFORMATION
  Report Type: Spontaneous
  Country: GR (occurrence: GR)
  Receive Date: 20170303
  Receipt Date: 20170303
  Transmission Date: 20170428
  Serious: Yes (Hospitalization)
  Sender: FDA-Public Use
  Company Number: GR-TEVA-743891ISR

PATIENT
  Sex: Male

DRUGS (2)
  1. EXELON [Concomitant]
     Active Substance: RIVASTIGMINE TARTRATE
     Indication: DEMENTIA ALZHEIMER^S TYPE
     Route: 062
  2. QUEPIN [Suspect]
     Active Substance: QUETIAPINE
     Indication: SCHIZOPHRENIA
     Dosage: 50 MG AFTER LUNCH AND 100 MG BEFORE SLEEP
     Route: 065

REACTIONS (5)
  - Illusion [Not Recovered/Not Resolved]
  - Loss of consciousness [Not Recovered/Not Resolved]
  - Drug dose omission [None]
  - Malaise [Not Recovered/Not Resolved]
  - Hyperkinesia [Not Recovered/Not Resolved]
